FAERS Safety Report 8928025 (Version 1)
Quarter: 2012Q4

REPORT INFORMATION
  Report Type: Spontaneous
  Country: US (occurrence: None)
  Receive Date: 20121121
  Receipt Date: 20121121
  Transmission Date: 20130627
  Serious: Yes (Hospitalization)
  Sender: FDA-Public Use
  Company Number: None

PATIENT
  Age: 48 Year
  Sex: Male
  Weight: 91.4 kg

DRUGS (1)
  1. DOXYCYCLINE [Suspect]
     Indication: ERYTHEMA MIGRANS
     Dosage: 100 MG BID PO
     Route: 048
     Dates: start: 20121110, end: 20121114

REACTIONS (7)
  - Lip swelling [None]
  - Angioedema [None]
  - Drooling [None]
  - Swelling face [None]
  - Swollen tongue [None]
  - Dysarthria [None]
  - No reaction on previous exposure to drug [None]
